FAERS Safety Report 7640602-2 (Version None)
Quarter: 2011Q3

REPORT INFORMATION
  Report Type: 
  Country: None (occurrence: None)
  Receive Date: 20110728
  Receipt Date: 20110722
  Transmission Date: 20111222
  Serious: No
  Sender: FDA-Public Use
  Company Number: US-BIOGENIDEC-2011BI027394

PATIENT
  Sex: Male

DRUGS (2)
  1. MEDICATION (NOS) [Concomitant]
     Indication: BLOOD CHOLESTEROL
  2. AVONEX [Suspect]
     Indication: MULTIPLE SCLEROSIS
     Route: 030
     Dates: start: 20011215

REACTIONS (4)
  - MUSCLE FATIGUE [None]
  - DEHYDRATION [None]
  - DEPRESSION [None]
  - MALAISE [None]
